FAERS Safety Report 24565880 (Version 1)
Quarter: 2024Q4

REPORT INFORMATION
  Report Type: Spontaneous
  Country: CN (occurrence: CN)
  Receive Date: 20241030
  Receipt Date: 20241030
  Transmission Date: 20250115
  Serious: Yes (Life-Threatening)
  Sender: BAXTER
  Company Number: None

PATIENT
  Age: 53 Year
  Sex: Female
  Weight: 49 kg

DRUGS (9)
  1. CYCLOPHOSPHAMIDE [Suspect]
     Active Substance: CYCLOPHOSPHAMIDE
     Indication: Neoplasm
     Dosage: 800 MG, ONE TIME IN ONE DAY (Q14D) DILUTED WITH 0.9% SODIUM CHLORIDE 100 ML, D1
     Route: 041
     Dates: start: 20241008, end: 20241009
  2. CYCLOPHOSPHAMIDE [Suspect]
     Active Substance: CYCLOPHOSPHAMIDE
     Indication: Chemotherapy
  3. CYCLOPHOSPHAMIDE [Suspect]
     Active Substance: CYCLOPHOSPHAMIDE
     Indication: Breast cancer female
  4. PIRARUBICIN HYDROCHLORIDE [Suspect]
     Active Substance: PIRARUBICIN HYDROCHLORIDE
     Indication: Neoplasm
     Dosage: 80 MG, ONE TIME IN ONE DAY (Q14D) DILUTED WITH 5% GLUCOSE 100 ML, D1
     Route: 041
     Dates: start: 20241008, end: 20241009
  5. PIRARUBICIN HYDROCHLORIDE [Suspect]
     Active Substance: PIRARUBICIN HYDROCHLORIDE
     Indication: Chemotherapy
  6. PIRARUBICIN HYDROCHLORIDE [Suspect]
     Active Substance: PIRARUBICIN HYDROCHLORIDE
     Indication: Breast cancer female
  7. SODIUM CHLORIDE [Suspect]
     Active Substance: SODIUM CHLORIDE
     Indication: Medication dilution
     Dosage: 100 ML, ONE TIME IN ONE DAY (Q14D), INJECTION, USED TO DILUTE CYCLOPHOSPHAMIDE 800 MG, D1
     Route: 041
     Dates: start: 20241008, end: 20241009
  8. DEXTROSE [Suspect]
     Active Substance: DEXTROSE MONOHYDRATE
     Indication: Medication dilution
     Dosage: 100 ML, ONE TIME IN ONE DAY (Q14D), INJECTION, USED TO DILUTE PIRARUBICIN HYDROCHLORIDE 80 MG, D1
     Route: 041
     Dates: start: 20241008, end: 20241009
  9. ANF-RHO [Suspect]
     Active Substance: ANF-RHO
     Indication: Prophylaxis
     Dosage: 6 MG
     Route: 058
     Dates: start: 20241014

REACTIONS (2)
  - Granulocyte count decreased [Recovered/Resolved]
  - Platelet count decreased [Recovered/Resolved]

NARRATIVE: CASE EVENT DATE: 20241014
